FAERS Safety Report 7818177-4 (Version None)
Quarter: 2011Q4

REPORT INFORMATION
  Report Type: 
  Country: None (occurrence: None)
  Receive Date: 20111017
  Receipt Date: 20111013
  Transmission Date: 20120403
  Serious: Yes (Congenital Anomaly)
  Sender: FDA-Public Use
  Company Number: GB-TEVA-304987ISR

PATIENT

DRUGS (5)
  1. LEVOTHYROXINE SODIUM [Concomitant]
     Indication: HYPOTHYROIDISM
     Route: 048
     Dates: start: 20100101
  2. FLUOXETINE [Suspect]
     Indication: DEPRESSION
     Dosage: INITIAL DOSE AT CONCEPTION WAS 60MG, REDUCED DURING PREGNANCY TO 20MG DAILY
     Route: 064
     Dates: start: 20100128, end: 20110819
  3. QVAR 40 [Concomitant]
     Indication: ASTHMA
     Route: 055
     Dates: start: 20101206
  4. SULFASALAZINE [Concomitant]
     Indication: ARTHROPATHY
     Route: 064
     Dates: start: 20100113
  5. FERROUS FUMARATE [Concomitant]
     Indication: ANAEMIA
     Route: 048

REACTIONS (1)
  - CLEFT PALATE [None]
